FAERS Safety Report 5725430-7 (Version None)
Quarter: 2008Q2

REPORT INFORMATION
  Report Type: 
  Country: None (occurrence: None)
  Receive Date: 20080501
  Receipt Date: 20080424
  Transmission Date: 20081010
  Serious: Yes (Other)
  Sender: FDA-Public Use
  Company Number: US-ASTRAZENECA-2006UW06966

PATIENT
  Sex: Female
  Weight: 81.6 kg

DRUGS (11)
  1. ARIMIDEX [Suspect]
     Indication: BREAST CANCER FEMALE
     Route: 048
     Dates: start: 20030401, end: 20080421
  2. ZETIA [Concomitant]
     Dates: start: 20040101
  3. VERAPAMIL [Concomitant]
  4. LORAZEPAM [Concomitant]
  5. POTASSIUM CHLORIDE [Concomitant]
  6. PAXIL [Concomitant]
  7. ASPIRIN [Concomitant]
  8. CALCIUM WITH VITAMIN D [Concomitant]
  9. HYDROCHLOROTHIAZIDE [Concomitant]
  10. OMEGA 3 [Concomitant]
  11. FOLCAPS [Concomitant]

REACTIONS (18)
  - ALANINE AMINOTRANSFERASE INCREASED [None]
  - ARTHRALGIA [None]
  - ASPARTATE AMINOTRANSFERASE INCREASED [None]
  - BLOOD ALKALINE PHOSPHATASE INCREASED [None]
  - BLOOD AMYLASE INCREASED [None]
  - BLOOD CHOLESTEROL INCREASED [None]
  - BLOOD TRIGLYCERIDES INCREASED [None]
  - BRONCHITIS [None]
  - CATARACT OPERATION [None]
  - DEHYDROEPIANDROSTERONE INCREASED [None]
  - GASTRIC DISORDER [None]
  - HYPERTRICHOSIS [None]
  - LIPASE INCREASED [None]
  - LIVER FUNCTION TEST ABNORMAL [None]
  - NERVOUSNESS [None]
  - PANCREATIC DISORDER [None]
  - TINNITUS [None]
  - WEIGHT DECREASED [None]
